FAERS Safety Report 8995933 (Version 2)
Quarter: 2013Q1

REPORT INFORMATION
  Report Type: Spontaneous
  Country: US (occurrence: US)
  Receive Date: 20130103
  Receipt Date: 20130107
  Transmission Date: 20140127
  Serious: Yes (Hospitalization)
  Sender: FDA-Public Use
  Company Number: CHPA2012US025026

PATIENT
  Age: 48 Year
  Sex: Female

DRUGS (2)
  1. PREVACID 24HR 15MG [Suspect]
     Indication: CHEST PAIN
     Dosage: 15 MG, BID
     Route: 048
     Dates: start: 201212
  2. PREVACID 24HR 15MG [Suspect]
     Dosage: 15 MG, BID
     Route: 048
     Dates: start: 2012, end: 201212

REACTIONS (15)
  - Coronary artery disease [Unknown]
  - Chest pain [Recovered/Resolved]
  - Blood potassium decreased [Recovered/Resolved]
  - Blood pressure increased [Unknown]
  - Abdominal pain upper [Recovered/Resolved]
  - Condition aggravated [Recovered/Resolved]
  - Vomiting projectile [Recovered/Resolved]
  - Gastric disorder [Recovered/Resolved]
  - Nausea [Unknown]
  - Gastrooesophageal reflux disease [Unknown]
  - Myalgia [Unknown]
  - Off label use [Unknown]
  - Prescribed overdose [Unknown]
  - Incorrect drug administration duration [Unknown]
  - Wrong technique in drug usage process [Unknown]
